FAERS Safety Report 11894655 (Version 1)
Quarter: 2016Q1

REPORT INFORMATION
  Report Type: Spontaneous
  Country: TR (occurrence: TR)
  Receive Date: 20160107
  Receipt Date: 20160107
  Transmission Date: 20160526
  Serious: Yes (Hospitalization, Other)
  Sender: FDA-Public Use
  Company Number: PHHY2016TR000795

PATIENT
  Age: 55 Year
  Sex: Female

DRUGS (2)
  1. ONDANSETRON [Suspect]
     Active Substance: ONDANSETRON
     Indication: NAUSEA
     Dosage: 4 MG, UNK
     Route: 042
  2. FEMARA [Suspect]
     Active Substance: LETROZOLE
     Indication: PROPHYLACTIC CHEMOTHERAPY
     Dosage: 2.5 MG, UNK
     Route: 065

REACTIONS (4)
  - Angioedema [Unknown]
  - Lip swelling [Unknown]
  - Respiratory arrest [Unknown]
  - Dyspnoea [Unknown]
